FAERS Safety Report 12703932 (Version 3)
Quarter: 2016Q3

REPORT INFORMATION
  Report Type: Report from Study
  Country: JP (occurrence: KR)
  Receive Date: 20160831
  Receipt Date: 20160916
  Transmission Date: 20161109
  Serious: Yes (Hospitalization)
  Sender: FDA-Public Use
  Company Number: KR-FRI-1000086704

PATIENT
  Age: 24 Year
  Sex: Male
  Weight: 86.3 kg

DRUGS (3)
  1. PLACEBO [Suspect]
     Active Substance: UNSPECIFIED INGREDIENT
     Indication: SCHIZOPHRENIA
     Route: 048
     Dates: start: 20150506, end: 20150617
  2. CARIPRAZINE [Suspect]
     Active Substance: CARIPRAZINE
     Indication: SCHIZOPHRENIA
     Dosage: 6MG
     Route: 048
     Dates: start: 20150618, end: 20150731
  3. CARIPRAZINE (OPEN-LABEL) [Suspect]
     Active Substance: CARIPRAZINE
     Indication: SCHIZOPHRENIA
     Dosage: 3 MG
     Route: 048
     Dates: start: 20150801, end: 20160525

REACTIONS (2)
  - Schizophrenia [Recovered/Resolved]
  - Limb injury [Recovered/Resolved]

NARRATIVE: CASE EVENT DATE: 20160702
